FAERS Safety Report 9092311 (Version 1)
Quarter: 2013Q1

REPORT INFORMATION
  Report Type: Spontaneous
  Country: US (occurrence: US)
  Receive Date: 20130201
  Receipt Date: 20130201
  Transmission Date: 20140127
  Serious: No
  Sender: FDA-Public Use
  Company Number: US-ABBOTT-12P-163-1022906-00

PATIENT
  Age: 38 Year
  Sex: Male

DRUGS (7)
  1. HUMIRA [Suspect]
     Indication: CROHN^S DISEASE
     Dates: start: 201207
  2. LIALDA [Concomitant]
     Indication: CROHN^S DISEASE
  3. B-12 [Concomitant]
     Indication: VITAMIN SUPPLEMENTATION
  4. VITAMIN D [Concomitant]
     Indication: VITAMIN SUPPLEMENTATION
  5. LOVAZA [Concomitant]
     Indication: VITAMIN SUPPLEMENTATION
  6. LIMBREL [Concomitant]
     Indication: VITAMIN SUPPLEMENTATION
  7. ZOFRAN [Concomitant]
     Indication: CROHN^S DISEASE

REACTIONS (2)
  - Drug dose omission [Not Recovered/Not Resolved]
  - Nasopharyngitis [Unknown]
